FAERS Safety Report 11428332 (Version 1)
Quarter: 2015Q3

REPORT INFORMATION
  Report Type: Spontaneous
  Country: US (occurrence: US)
  Receive Date: 20150828
  Receipt Date: 20150828
  Transmission Date: 20151125
  Serious: No
  Sender: FDA-Public Use
  Company Number: US-ROCHE-1242527

PATIENT
  Sex: Male

DRUGS (7)
  1. PEGASYS [Suspect]
     Active Substance: PEGINTERFERON ALFA-2A
     Indication: CHRONIC HEPATITIS C
     Route: 058
     Dates: start: 20130613
  2. PREDNISONE. [Concomitant]
     Active Substance: PREDNISONE
  3. RIBASPHERE [Suspect]
     Active Substance: RIBAVIRIN
     Indication: CHRONIC HEPATITIS C
     Dosage: 1000 MG DAILY IN TWO DIVIDED DOSES
     Route: 048
     Dates: start: 20130613
  4. RIBASPHERE [Suspect]
     Active Substance: RIBAVIRIN
     Dosage: ONE IN MORNING AND ONE AND A HALF IN EVENING
     Route: 065
     Dates: start: 20130613
  5. METFORMIN [Concomitant]
     Active Substance: METFORMIN HYDROCHLORIDE
  6. GLIPIZIDE. [Concomitant]
     Active Substance: GLIPIZIDE
  7. BOCEPREVIR [Suspect]
     Active Substance: BOCEPREVIR
     Indication: HEPATITIS C
     Route: 065
     Dates: start: 20130711

REACTIONS (14)
  - Muscular weakness [Unknown]
  - Increased tendency to bruise [Unknown]
  - Anaemia [Unknown]
  - Decreased appetite [Unknown]
  - Blood glucose fluctuation [Unknown]
  - Underdose [Unknown]
  - Myopathy [Unknown]
  - Chromaturia [Unknown]
  - Anger [Unknown]
  - Chest pain [Unknown]
  - Wrong technique in product usage process [Unknown]
  - Haemoglobin decreased [Unknown]
  - Asthenia [Unknown]
  - Irritability [Unknown]
